FAERS Safety Report 9337765 (Version 2)
Quarter: 2013Q4

REPORT INFORMATION
  Report Type: Spontaneous
  Country: US (occurrence: US)
  Receive Date: 20130607
  Receipt Date: 20131115
  Transmission Date: 20140711
  Serious: Yes (Hospitalization)
  Sender: FDA-Public Use
  Company Number: US-B.I. PHARMACEUTICALS,INC./RIDGEFIELD-2013-BI-15923BP

PATIENT
  Age: 71 Year
  Sex: Female
  Weight: 53.52 kg

DRUGS (9)
  1. PRADAXA [Suspect]
     Indication: ANTICOAGULANT THERAPY
     Dosage: 300 MG
     Dates: start: 20120101, end: 20120224
  2. IRON [Concomitant]
  3. LOSARTAN [Concomitant]
     Dosage: 100 MG
  4. CARTIA XR [Concomitant]
     Dosage: 360 MG
  5. OMEPRAZOLE [Concomitant]
     Dosage: 40 MG
  6. ASPIRIN [Concomitant]
     Dosage: 81 MG
  7. MULTAQ [Concomitant]
     Dosage: 800 MG
  8. SIMVASTATIN [Concomitant]
     Dosage: 20 MG
  9. SINGULAIR [Concomitant]
     Dosage: 10 MG

REACTIONS (2)
  - Gastrointestinal haemorrhage [Recovered/Resolved]
  - Anaemia [Unknown]
